FAERS Safety Report 8288946-8 (Version None)
Quarter: 2012Q2

REPORT INFORMATION
  Report Type: 
  Country: None (occurrence: None)
  Receive Date: 20120412
  Receipt Date: 20120331
  Transmission Date: 20120825
  Serious: Yes (Other)
  Sender: FDA-Public Use
  Company Number: AUR-APL-2012-01688

PATIENT
  Age: 9 Year
  Sex: Female

DRUGS (3)
  1. EFAVIRENZ [Suspect]
     Indication: ANTIRETROVIRAL THERAPY
  2. LAMIVUDINE [Suspect]
     Indication: ANTIRETROVIRAL THERAPY
  3. STAVUDINE [Suspect]
     Indication: ANTIRETROVIRAL THERAPY

REACTIONS (8)
  - MARASMUS [None]
  - PNEUMONIA [None]
  - HERPES ZOSTER [None]
  - ACUTE MYELOID LEUKAEMIA [None]
  - LUNG DISORDER [None]
  - HEMIPLEGIA [None]
  - DECREASED APPETITE [None]
  - DRUG INTERACTION [None]
